FAERS Safety Report 17169531 (Version 1)
Quarter: 2019Q4

REPORT INFORMATION
  Report Type: Spontaneous
  Country: IT (occurrence: IT)
  Receive Date: 20191218
  Receipt Date: 20191218
  Transmission Date: 20200122
  Serious: Yes (Other)
  Sender: FDA-Public Use
  Company Number: IT-EMD SERONO-9135307

PATIENT
  Sex: Female

DRUGS (1)
  1. REBIF [Suspect]
     Active Substance: INTERFERON BETA-1A
     Indication: PRODUCT USED FOR UNKNOWN INDICATION
     Dosage: 22 (UNSPECIFIED UNITS)

REACTIONS (5)
  - Injection site pain [Unknown]
  - Hepatic enzyme increased [Unknown]
  - Reticulocyte count decreased [Unknown]
  - White blood cell count decreased [Unknown]
  - Blood iron decreased [Unknown]
